FAERS Safety Report 8406617 (Version 2)
Quarter: 2013Q2

REPORT INFORMATION
  Report Type: Spontaneous
  Country: US (occurrence: None)
  Receive Date: 20111227
  Receipt Date: 20120426
  Transmission Date: 20140414
  Serious: No
  Sender: FDA-Public Use
  Company Number: PHEH2011US008583

PATIENT
  Age: 44 Year
  Sex: Female

DRUGS (5)
  1. GILENYA [Suspect]
     Dosage: 0.5 MG, QD, ORAL
     Route: 048
     Dates: start: 20111021
  2. CYMBALTA (DULOXETINE HYDROCHLORIDE) [Concomitant]
  3. LAMICTAL (LAMOTRIGINE) [Concomitant]
  4. BACLOFEN (BACLOFEN) [Concomitant]
  5. LEVOXL (LEVOTHYROXINE SODIUM) [Concomitant]

REACTIONS (3)
  - Blood pressure decreased [None]
  - ASTHENIA [None]
  - Hypotension [None]
